FAERS Safety Report 7167297-9 (Version None)
Quarter: 2010Q4

REPORT INFORMATION
  Report Type: 
  Country: None (occurrence: None)
  Receive Date: 20101216
  Receipt Date: 20101207
  Transmission Date: 20110411
  Serious: Yes (Hospitalization, Other)
  Sender: FDA-Public Use
  Company Number: JP-ROCHE-747427

PATIENT
  Age: 76 Year
  Sex: Female

DRUGS (2)
  1. XELODA [Suspect]
     Indication: COLON CANCER
     Dosage: DRUG CHARACTERISATION: INTERACTIVE
     Route: 048
     Dates: start: 20101005, end: 20101108
  2. WARFARIN POTASSIUM [Interacting]
     Dosage: DOSAGE IS UNCERTAIN. DRUG CHARACTERISATION: INTERACTIVE.DRUG REPORTED: WARFARIN
     Route: 048

REACTIONS (3)
  - DRUG INTERACTION [None]
  - HAEMORRHAGE [None]
  - HAEMOTHORAX [None]
